FAERS Safety Report 9331867 (Version 1)
Quarter: 2013Q2

REPORT INFORMATION
  Report Type: Spontaneous
  Country: BR (occurrence: None)
  Receive Date: 20130603
  Receipt Date: 20130603
  Transmission Date: 20140414
  Serious: Yes (Death, Disabling, Other)
  Sender: FDA-Public Use
  Company Number: BR-023735

PATIENT
  Age: 21 Year
  Sex: Female
  Weight: 54.5 kg

DRUGS (18)
  1. BUSULFAN [Suspect]
     Indication: HODGKIN^S DISEASE
     Dosage: 56 MG AT 6H, 54 MG AT 12H, 18H, AND 24H
     Dates: start: 20110210, end: 20110213
  2. CYCLOPHOSPHAMIDE [Concomitant]
  3. ANTITHYMOCYTE GLOBULIN (ANTITHYMOCYTE IMMUNOGLOBULIN (RABBIT) [Concomitant]
  4. CEFEPIME (CEFEPIME) [Concomitant]
  5. NORETHISTERONE (NORETHISTERONE) [Concomitant]
  6. ONDANSETRON (ONDANSETRON) [Concomitant]
  7. HUMAN IMMUNOGLOBULIN (IMMUNOGLOBULINS, NORMAL HUMAN) [Concomitant]
  8. ALLOPURINOL [Concomitant]
  9. URSODEOXYCHOLIC ACID (URSODEOXYCHOLIC ACID) [Concomitant]
  10. METHYLPREDNISOLONE (METHYLPREDNISOLONE) [Concomitant]
  11. PROMETHAZINE (PROMETHAZINE) [Concomitant]
  12. DIPYRONE [Concomitant]
  13. FUROSEMIDE (FUROSEMIDE) [Concomitant]
  14. OMEPRAZOLE (OMEPRAZOLE) [Concomitant]
  15. MESNA (MESNA) [Concomitant]
  16. ACICLOVIR (ACICLOVIR) [Concomitant]
  17. FLUCONAZOLE (FLUCONAZOLE) [Concomitant]
  18. ALBENDAZOLE (ALBENDAZOLE) [Concomitant]

REACTIONS (6)
  - Respiratory failure [None]
  - Pneumonia [None]
  - Cystitis haemorrhagic [None]
  - Odynophagia [None]
  - Mucosal inflammation [None]
  - Pulmonary mass [None]
